FAERS Safety Report 7311079-1 (Version None)
Quarter: 2011Q1

REPORT INFORMATION
  Report Type: 
  Country: None (occurrence: None)
  Receive Date: 20110224
  Receipt Date: 20110217
  Transmission Date: 20110831
  Serious: Yes (Other)
  Sender: FDA-Public Use
  Company Number: FR-ROCHE-688547

PATIENT
  Sex: Male

DRUGS (5)
  1. ESIDRIX [Concomitant]
     Dosage: TOTAL DAILY DOSE REPORTED AS 1 TABLET. START DATE WAS REPORTED AS 04 JAN
  2. JANUVIA [Concomitant]
     Dosage: TOTAL DAILY DOSE REPORTED AS 1 TABLET.
     Dates: start: 20091201
  3. BEVACIZUMAB [Suspect]
     Indication: METASTATIC RENAL CELL CARCINOMA
     Dosage: LAST DOSE PRIOR TO SAE: 12 FEB 2010.  TEMPORARILY INTERRUPTED 26 FEB 2010.FREQUENCY REPORTED AS QOW.
     Route: 042
     Dates: start: 20080822, end: 20100212
  4. COVERSYL [Concomitant]
     Dosage: TOTAL DAILY DOSE REPORTED AS 1 TABLET.
     Dates: start: 20100104
  5. TEMSIROLIMUS [Suspect]
     Indication: RENAL CANCER METASTATIC
     Dosage: DATE OF LAST DOSE PRIOR TO SAE: 26 FEBRUARY 2010. FREQUENCY REPORTED AS QW.
     Route: 042
     Dates: start: 20080822

REACTIONS (1)
  - OSTEONECROSIS OF JAW [None]
